FAERS Safety Report 9426016 (Version 1)
Quarter: 2013Q3

REPORT INFORMATION
  Report Type: Spontaneous
  Country: CA (occurrence: CA)
  Receive Date: 20130730
  Receipt Date: 20130730
  Transmission Date: 20140515
  Serious: Yes (Other)
  Sender: FDA-Public Use
  Company Number: CA-ASTRAZENECA-2013SE55181

PATIENT
  Age: 27 Year
  Sex: Female

DRUGS (1)
  1. DIPRIVAN [Suspect]
     Route: 042

REACTIONS (1)
  - Breast milk discolouration [Recovered/Resolved]
